FAERS Safety Report 4863890-4 (Version None)
Quarter: 2005Q4

REPORT INFORMATION
  Report Type: 
  Country: None (occurrence: None)
  Receive Date: 20051219
  Receipt Date: 20051206
  Transmission Date: 20060501
  Serious: No
  Sender: FDA-Public Use
  Company Number: 800360

PATIENT
  Age: 56 Year
  Sex: Female
  Weight: 80.9 kg

DRUGS (8)
  1. EXTRANEAL [Suspect]
     Indication: RENAL FAILURE CHRONIC
     Dosage: 1500 ML; EVERY DAY; IP
     Route: 033
     Dates: start: 20040219
  2. DIANEAL PD2 ULTRABAG [Concomitant]
  3. CALCIUM CARBONATE [Concomitant]
  4. AMLODIPINE BESYLATE [Concomitant]
  5. CANDESARTAN CILEXETIL [Concomitant]
  6. CARVEDILOL [Concomitant]
  7. INSULIN HUMAN [Concomitant]
  8. EPOETIN BETA [Concomitant]

REACTIONS (2)
  - ANAEMIA [None]
  - BLOOD IRON DECREASED [None]
